FAERS Safety Report 24539292 (Version 1)
Quarter: 2024Q4

REPORT INFORMATION
  Report Type: Other
  Country: GB (occurrence: GB)
  Receive Date: 20241023
  Receipt Date: 20241023
  Transmission Date: 20250115
  Serious: Yes (Other)
  Sender: MACLEODS
  Company Number: GB-MHRA-TPP25982077C6515997YC1728917509680

PATIENT

DRUGS (13)
  1. MEMANTINE [Suspect]
     Active Substance: MEMANTINE
     Indication: Ill-defined disorder
     Route: 065
     Dates: start: 20241003
  2. GLYCERIN [Concomitant]
     Active Substance: GLYCERIN
     Indication: Constipation
     Dosage: INSERT ONE SUPPOSITORY AS NEEDED FOR CONSTIPATION
     Route: 065
     Dates: start: 20240716, end: 20240728
  3. ISPAGHULA EXTRACT\PSYLLIUM [Concomitant]
     Active Substance: HERBALS\PLANTAGO OVATA SEED\PLANTAGO SEED
     Indication: Constipation
     Dosage: USE ONE OR TWO SACHETS DAILY TO TREAT CONSTIPATION
     Route: 065
     Dates: start: 20240716, end: 20240730
  4. SENNA [Concomitant]
     Active Substance: SENNA LEAF\SENNOSIDES\SENNOSIDES A AND B
     Indication: Constipation
     Dosage: TAKE ONE TO TWO TABLETS AT NIGHT TO TREAT CONST...
     Route: 065
     Dates: start: 20240716, end: 20240813
  5. NITROFURANTOIN [Concomitant]
     Active Substance: NITROFURANTOIN
     Indication: Ill-defined disorder
     Dosage: TAKE ONE CAPSULE TWICE DAILY FOR 3 DAYS, TO TRE...
     Route: 065
     Dates: start: 20240821, end: 20240824
  6. LACTULOSE [Concomitant]
     Active Substance: LACTULOSE
     Indication: Constipation
     Dosage: 5-10ML TWICE DAILY TO TREAT CONSTIPATION
     Route: 065
     Dates: start: 20241007
  7. BRINZOLAMIDE [Concomitant]
     Active Substance: BRINZOLAMIDE
     Indication: Ill-defined disorder
     Dosage: ONE DROP TWICE A DAY TO LEFT EYES.
     Route: 065
     Dates: start: 20240530
  8. CLOBETASONE BUTYRATE [Concomitant]
     Active Substance: CLOBETASONE BUTYRATE
     Indication: Ill-defined disorder
     Dosage: APPLY  THINLY ONCE A DAY TO TREAT SKIN CONDITION
     Route: 065
     Dates: start: 20240530
  9. MINERAL OIL\PARAFFIN [Concomitant]
     Active Substance: MINERAL OIL\PARAFFIN
     Indication: Ill-defined disorder
     Dosage: USE FREQUENTLY AS A MOISTURISER
     Route: 065
     Dates: start: 20240530
  10. LATANOPROST [Concomitant]
     Active Substance: LATANOPROST
     Indication: Ill-defined disorder
     Dosage: ONE DROP ONCE DAILY BOTH EYES AT NIGHT
     Route: 065
     Dates: start: 20240530
  11. RAMIPRIL [Concomitant]
     Active Substance: RAMIPRIL
     Indication: Blood pressure abnormal
     Dosage: TAKE ONE DAILY FOR BLOOD PRESSURE.
     Route: 065
     Dates: start: 20240530
  12. SIMVASTATIN [Concomitant]
     Active Substance: SIMVASTATIN
     Dosage: TAKE ONE AT NIGHT TO REDUCE CHOLESTEROL
     Route: 065
     Dates: start: 20240530
  13. DONEPEZIL HYDROCHLORIDE [Concomitant]
     Active Substance: DONEPEZIL HYDROCHLORIDE
     Indication: Ill-defined disorder
     Dosage: TAKE ONE TABLET AT NIGHT - INFO ONLY, CURRENTLY...
     Route: 065
     Dates: start: 20240624

REACTIONS (1)
  - Agitation [Recovered/Resolved]
